FAERS Safety Report 12213365 (Version 1)
Quarter: 2016Q1

REPORT INFORMATION
  Report Type: Spontaneous
  Country: US (occurrence: None)
  Receive Date: 20160325
  Receipt Date: 20160325
  Transmission Date: 20160526
  Serious: Yes (Hospitalization)
  Sender: FDA-Public Use
  Company Number: None

PATIENT
  Age: 67 Year
  Sex: Male
  Weight: 61.9 kg

DRUGS (2)
  1. DEXAMETHASONE. [Suspect]
     Active Substance: DEXAMETHASONE
     Indication: INFECTION
     Route: 042
     Dates: start: 20160314, end: 20160314
  2. DEXAMETHASONE. [Suspect]
     Active Substance: DEXAMETHASONE
     Indication: HODGKIN^S DISEASE
     Route: 042
     Dates: start: 20160314, end: 20160314

REACTIONS (8)
  - Disorientation [None]
  - Paranoia [None]
  - Hallucination [None]
  - Metastases to central nervous system [None]
  - Urinary tract infection [None]
  - Confusional state [None]
  - Psychotic disorder [None]
  - Delusion [None]

NARRATIVE: CASE EVENT DATE: 20160315
